FAERS Safety Report 16577661 (Version 1)
Quarter: 2019Q3

REPORT INFORMATION
  Report Type: Spontaneous
  Country: NG (occurrence: NG)
  Receive Date: 20190716
  Receipt Date: 20190716
  Transmission Date: 20191004
  Serious: Yes (Death, Hospitalization, Other)
  Sender: FDA-Public Use
  Company Number: NG-PFIZER INC-2019302578

PATIENT
  Sex: Female
  Weight: 80 kg

DRUGS (2)
  1. VFEND [Suspect]
     Active Substance: VORICONAZOLE
     Dosage: INITIALLY ADMINISTERED VORICONAZOLE VIALS ABOUT 14 VIALS OR SO
  2. VFEND [Suspect]
     Active Substance: VORICONAZOLE
     Dosage: 200 MG, 2X/DAY
     Route: 048
     Dates: start: 20190601, end: 20190602

REACTIONS (3)
  - Multiple organ dysfunction syndrome [Fatal]
  - Blood lactic acid increased [Fatal]
  - Hypotension [Fatal]
